FAERS Safety Report 17371592 (Version 1)
Quarter: 2020Q1

REPORT INFORMATION
  Report Type: Report from Study
  Country: MX (occurrence: MX)
  Receive Date: 20200205
  Receipt Date: 20200205
  Transmission Date: 20200409
  Serious: Yes (Other)
  Sender: FDA-Public Use
  Company Number: MX-DSJP-DSU-2020-104543

PATIENT

DRUGS (1)
  1. OLMESARTAN [Suspect]
     Active Substance: OLMESARTAN
     Indication: HYPERTENSION
     Dosage: 20 MG, QD
     Route: 048
     Dates: start: 201501

REACTIONS (12)
  - Hyperuricaemia [Unknown]
  - Homans^ sign positive [Unknown]
  - Urinary tract infection bacterial [Unknown]
  - Osteoarthritis [Unknown]
  - Arthralgia [Unknown]
  - Finger deformity [Unknown]
  - Foot deformity [Unknown]
  - Oedema peripheral [Recovered/Resolved]
  - Peripheral venous disease [Unknown]
  - Phlebectomy [Unknown]
  - Anaemia [Unknown]
  - Burning sensation [Unknown]

NARRATIVE: CASE EVENT DATE: 201701
